FAERS Safety Report 7409396-X (Version None)
Quarter: 2011Q2

REPORT INFORMATION
  Report Type: 
  Country: None (occurrence: None)
  Receive Date: 20110412
  Receipt Date: 20100908
  Transmission Date: 20111010
  Serious: Yes (Hospitalization, Other)
  Sender: FDA-Public Use
  Company Number: US-BAYER-200940980NA

PATIENT
  Age: 45 Year
  Sex: Female
  Weight: 80.272 kg

DRUGS (9)
  1. ST. JOHN'S WORT [Concomitant]
     Indication: DEPRESSION
     Dosage: UNK UNK, QD
     Dates: start: 20080704
  2. HUMIRA [Concomitant]
     Indication: CROHN'S DISEASE
     Dosage: UNK
     Dates: start: 20070101
  3. MOTRIN [Concomitant]
  4. CELEBREX [Concomitant]
     Indication: RHEUMATOID ARTHRITIS
     Dosage: UNK
     Dates: start: 20050101, end: 20090101
  5. CALCIUM [Concomitant]
     Indication: SUPPLEMENTATION THERAPY
     Dosage: UNK UNK, QD
     Dates: start: 20080704
  6. YAZ [Suspect]
     Indication: PREMENSTRUAL SYNDROME
     Dosage: DAILY DOSE 1 DF
     Route: 048
     Dates: start: 20071119, end: 20080704
  7. ASACOL [Concomitant]
     Indication: CROHN'S DISEASE
     Dosage: UNK
     Dates: start: 20070101
  8. METHOTREXATE [Concomitant]
     Indication: CROHN'S DISEASE
     Dosage: UNK UNK, OW
     Dates: start: 20080701
  9. FOLIC ACID [Concomitant]
     Indication: SUPPLEMENTATION THERAPY
     Dosage: UNK
     Dates: start: 20080704

REACTIONS (3)
  - OEDEMA PERIPHERAL [None]
  - DEEP VEIN THROMBOSIS [None]
  - PAIN [None]
